FAERS Safety Report 16048002 (Version 1)
Quarter: 2019Q1

REPORT INFORMATION
  Report Type: Report from Study
  Country: IT (occurrence: IT)
  Receive Date: 20190307
  Receipt Date: 20190307
  Transmission Date: 20190418
  Serious: Yes (Death)
  Sender: FDA-Public Use
  Company Number: IT-AMREGENT-20181094

PATIENT
  Age: 61 Year
  Sex: Female

DRUGS (7)
  1. DIBASE [Concomitant]
     Active Substance: CHOLECALCIFEROL
     Dosage: UNKNOWN
     Route: 065
  2. COUMADIN [Concomitant]
     Active Substance: WARFARIN SODIUM
     Dosage: UNKNOWN
     Route: 065
  3. ENOXAPARIN [Concomitant]
     Active Substance: ENOXAPARIN
     Dosage: 4000 KU
     Route: 058
  4. AMIODARONE [Concomitant]
     Active Substance: AMIODARONE
     Dosage: UNKNOWN
     Route: 065
  5. SPIRONOLACTONE/FUROSEMIDE [Concomitant]
     Active Substance: FUROSEMIDE\SPIRONOLACTONE
     Dosage: UNKNOWN
     Route: 065
  6. CALCIUM-SANDOZ [Concomitant]
     Active Substance: CALCIUM
     Dosage: UNKNOWN
     Route: 065
  7. FERINJECT [Suspect]
     Active Substance: FERRIC CARBOXYMALTOSE
     Dosage: THERAPEUTIC ERROR 1000 MG, 1 D
     Route: 042
     Dates: start: 20180324, end: 20180413

REACTIONS (3)
  - Blood iron increased [Fatal]
  - Medication error [Fatal]
  - Serum ferritin increased [Fatal]

NARRATIVE: CASE EVENT DATE: 20180413
